FAERS Safety Report 14335978 (Version 1)
Quarter: 2017Q4

REPORT INFORMATION
  Report Type: Spontaneous
  Country: FR (occurrence: FR)
  Receive Date: 20171229
  Receipt Date: 20171229
  Transmission Date: 20180321
  Serious: Yes (Other)
  Sender: FDA-Public Use
  Company Number: FR-BAYER-2017-250467

PATIENT
  Sex: Female
  Weight: 75 kg

DRUGS (4)
  1. OMEPRAZOLE. [Concomitant]
     Active Substance: OMEPRAZOLE
  2. MIRENA [Suspect]
     Active Substance: LEVONORGESTREL
     Indication: CONTRACEPTION
     Dosage: 20 MCG/24HR, CONT
     Route: 015
     Dates: start: 20160110, end: 20171019
  3. LUTERAN [Concomitant]
     Active Substance: CHLORMADINONE ACETATE
  4. MIRENA [Suspect]
     Active Substance: LEVONORGESTREL
     Indication: CONTRACEPTION

REACTIONS (12)
  - Nausea [Recovering/Resolving]
  - Abdominal pain lower [Recovering/Resolving]
  - Diffuse alopecia [Recovering/Resolving]
  - Ovarian cyst [Recovered/Resolved with Sequelae]
  - Hot flush [Recovering/Resolving]
  - Breast pain [Recovered/Resolved]
  - Endometrial hyperplasia [Recovered/Resolved with Sequelae]
  - Galactorrhoea [Recovered/Resolved]
  - Migraine [Recovering/Resolving]
  - Vaginal discharge [Recovering/Resolving]
  - Vertigo [Recovering/Resolving]
  - Fatigue [Recovering/Resolving]

NARRATIVE: CASE EVENT DATE: 201706
